FAERS Safety Report 9963458 (Version 1)
Quarter: 2014Q1

REPORT INFORMATION
  Report Type: Report from Study
  Country: US (occurrence: US)
  Receive Date: 20140305
  Receipt Date: 20140305
  Transmission Date: 20141002
  Serious: No
  Sender: FDA-Public Use
  Company Number: US-ABBVIE-13P-163-1117995-00

PATIENT
  Sex: Male

DRUGS (10)
  1. HUMIRA [Suspect]
     Indication: PSORIASIS
     Dates: start: 2010, end: 201212
  2. METFORMIN [Concomitant]
     Indication: DIABETES MELLITUS
  3. LOSARTAN POTASSIUM [Concomitant]
     Indication: HYPERTENSION
     Dosage: 50 MG DAILY
  4. TRICOR [Concomitant]
     Indication: BLOOD CHOLESTEROL INCREASED
     Dosage: 145 MG DAILY
  5. ZYRTEC [Concomitant]
     Indication: HYPERSENSITIVITY
     Dosage: 10 MG DAILY
     Route: 048
  6. ECOTRIN [Concomitant]
     Indication: CEREBROVASCULAR ACCIDENT
     Dosage: 650 MG DAILY
     Route: 048
  7. FISH OIL [Concomitant]
     Indication: BLOOD CHOLESTEROL INCREASED
     Route: 048
  8. FISH OIL [Concomitant]
     Indication: ARTHRALGIA
  9. LANTUS [Concomitant]
     Indication: DIABETES MELLITUS
     Dosage: 28 UNITS DAILY
  10. VITAMIN D [Concomitant]
     Indication: VITAMIN D DECREASED
     Dosage: 2000 UNITS DAILY
     Route: 048

REACTIONS (1)
  - Psoriasis [Not Recovered/Not Resolved]
